FAERS Safety Report 9432410 (Version 1)
Quarter: 2013Q3

REPORT INFORMATION
  Report Type: Spontaneous
  Country: US (occurrence: None)
  Receive Date: 20130730
  Receipt Date: 20130730
  Transmission Date: 20140515
  Serious: Yes (Disabling)
  Sender: FDA-Public Use
  Company Number: None

PATIENT
  Age: 47 None
  Sex: Male
  Weight: 86.18 kg

DRUGS (1)
  1. NASONEX [Suspect]
     Indication: FOOD ALLERGY
     Dosage: 50 MG 2 SPRAYS IN NOSTRIL DAILY
     Route: 045
     Dates: start: 2007, end: 2010

REACTIONS (1)
  - Cataract [None]
